FAERS Safety Report 23935935 (Version 1)
Quarter: 2024Q2

REPORT INFORMATION
  Report Type: Spontaneous
  Country: FR (occurrence: FR)
  Receive Date: 20240604
  Receipt Date: 20240604
  Transmission Date: 20240715
  Serious: Yes (Hospitalization)
  Sender: FDA-Public Use
  Company Number: None

PATIENT

DRUGS (7)
  1. ONCASPAR [Suspect]
     Active Substance: PEGASPARGASE
     Indication: T-cell type acute leukaemia
     Dosage: 663 IU
     Route: 042
     Dates: start: 20240401
  2. CYTARABINE [Suspect]
     Active Substance: CYTARABINE
     Indication: T-cell type acute leukaemia
     Dosage: 30 MG, ON 26-MAR, 05-APR  AND 09-APR-2024
     Route: 037
     Dates: start: 20240326, end: 20240409
  3. HYDROCORTISONE [Suspect]
     Active Substance: HYDROCORTISONE
     Indication: T-cell type acute leukaemia
     Dosage: 15 MG, ON 26-MAR, 05-APR AND 09-APR-2024
     Route: 037
     Dates: start: 20240326, end: 20240409
  4. METHOTREXATE [Suspect]
     Active Substance: METHOTREXATE
     Indication: T-cell type acute leukaemia
     Dosage: 12 MG, ON 26-MAR, 05-APR AND 09-APR-2024
     Route: 037
     Dates: start: 20240326, end: 20240409
  5. METHOTREXATE [Suspect]
     Active Substance: METHOTREXATE
     Dosage: 2980 MG
     Route: 042
     Dates: start: 20240329, end: 20240329
  6. VINCRISTINE [Suspect]
     Active Substance: VINCRISTINE
     Indication: T-cell type acute leukaemia
     Dosage: 0.99 MG, ON 29-AMR AND 03-APR-2024
     Route: 042
     Dates: start: 20240329, end: 20240403
  7. DEXAMETHASONE [Concomitant]
     Active Substance: DEXAMETHASONE
     Indication: T-cell type acute leukaemia
     Dosage: 10 MG/M2, QD
     Route: 042
     Dates: start: 20240326, end: 20240402

REACTIONS (1)
  - Leukoencephalopathy [Not Recovered/Not Resolved]

NARRATIVE: CASE EVENT DATE: 20240414
